FAERS Safety Report 6935282-5 (Version None)
Quarter: 2010Q3

REPORT INFORMATION
  Report Type: 
  Country: None (occurrence: None)
  Receive Date: 20100822
  Receipt Date: 20100701
  Transmission Date: 20110219
  Serious: Yes (Hospitalization)
  Sender: FDA-Public Use
  Company Number: PHHO2010US08724

PATIENT
  Sex: Male
  Weight: 90.3 kg

DRUGS (18)
  1. AFINITOR [Suspect]
     Indication: NON-SMALL CELL LUNG CANCER
     Dosage: 5 MG, QD
     Route: 048
  2. AFINITOR [Suspect]
     Dosage: 5 MG, QD
     Route: 048
     Dates: start: 20100524, end: 20100524
  3. ZESTRIL [Concomitant]
  4. GLUCOTROL XL [Concomitant]
  5. GLUCOPHAGE [Concomitant]
  6. PERCOCET [Concomitant]
  7. LOVENOX [Concomitant]
  8. LEVAQUIN [Concomitant]
  9. GEMFIBROZIL [Concomitant]
  10. LISINOPRIL [Concomitant]
  11. GLIPIZIDE [Concomitant]
  12. METFORMIN [Concomitant]
  13. DECADRON [Concomitant]
  14. OMEPRAZOLE [Concomitant]
  15. ACETAMINOPHEN [Concomitant]
  16. OXYCODONE [Concomitant]
  17. AUGMENTIN '125' [Concomitant]
  18. DEXAMETHASONE [Concomitant]

REACTIONS (9)
  - ABSCESS DRAINAGE [None]
  - CONVULSION [None]
  - DRUG INEFFECTIVE [None]
  - MALIGNANT NEOPLASM PROGRESSION [None]
  - METASTASES TO CENTRAL NERVOUS SYSTEM [None]
  - MUSCULOSKELETAL PAIN [None]
  - PROCTALGIA [None]
  - PROSTATIC ABSCESS [None]
  - SEPSIS [None]
